FAERS Safety Report 7102264 (Version 4)
Quarter: 2013Q2

REPORT INFORMATION
  Report Type: Spontaneous
  Country: GB (occurrence: None)
  Receive Date: 20090818
  Receipt Date: 20130424
  Transmission Date: 20140414
  Serious: Yes (Hospitalization, Other)
  Sender: FDA-Public Use
  Company Number: AUR-APL-2009-00172

PATIENT
  Age: 72 Year
  Sex: Female

DRUGS (7)
  1. FLUOXETINE [Suspect]
     Indication: PRODUCT USED FOR UNKNOWN INDICATION
  2. WARFARIN SODIUM [Suspect]
     Indication: PROPHYLAXIS
     Dates: end: 200309
  3. LANSOPRAZOLE [Suspect]
     Indication: PRODUCT USED FOR UNKNOWN INDICATION
  4. THYROXINE SODIUM [Concomitant]
  5. CODEINE [Concomitant]
  6. LOPERAMIDE [Concomitant]
  7. TEMAZEPAM [Concomitant]

REACTIONS (11)
  - Condition aggravated [None]
  - General physical health deterioration [None]
  - Device related sepsis [None]
  - Feeding disorder [None]
  - Fall [None]
  - Hepatic steatosis [None]
  - Hepatotoxicity [None]
  - Hepatitis cholestatic [None]
  - Hypothyroidism [None]
  - Mesenteric artery thrombosis [None]
  - Intestinal ischaemia [None]
